FAERS Safety Report 12881410 (Version 2)
Quarter: 2023Q4

REPORT INFORMATION
  Report Type: Spontaneous
  Country: US (occurrence: US)
  Receive Date: 20161025
  Receipt Date: 20231224
  Transmission Date: 20240110
  Serious: No
  Sender: FDA-Public Use
  Company Number: US-JNJFOC-20161009727

PATIENT
  Age: 10 Year
  Sex: Male

DRUGS (3)
  1. RISPERDAL [Suspect]
     Active Substance: RISPERIDONE
     Indication: Intermittent explosive disorder
     Route: 048
     Dates: start: 20020802, end: 20040330
  2. RISPERDAL [Suspect]
     Active Substance: RISPERIDONE
     Indication: Aggression
  3. RISPERDAL [Suspect]
     Active Substance: RISPERIDONE
     Indication: Attention deficit hyperactivity disorder

REACTIONS (4)
  - Increased appetite [Unknown]
  - Sedation [Unknown]
  - Gynaecomastia [Unknown]
  - Emotional disorder [Unknown]

NARRATIVE: CASE EVENT DATE: 20040330
